FAERS Safety Report 13328080 (Version 1)
Quarter: 2017Q1

REPORT INFORMATION
  Report Type: Spontaneous
  Country: US (occurrence: US)
  Receive Date: 20170313
  Receipt Date: 20170313
  Transmission Date: 20170428
  Serious: No
  Sender: FDA-Public Use
  Company Number: US-JNJFOC-20170212164

PATIENT
  Age: 32 Year
  Sex: Female
  Weight: 52.16 kg

DRUGS (2)
  1. WOMENS ROGAINE UNSCENTED [Suspect]
     Active Substance: MINOXIDIL
     Route: 061
  2. WOMENS ROGAINE UNSCENTED [Suspect]
     Active Substance: MINOXIDIL
     Indication: ALOPECIA
     Dosage: ABOUT A CAP
     Route: 061

REACTIONS (4)
  - Hair texture abnormal [Recovered/Resolved]
  - Drug hypersensitivity [Recovered/Resolved]
  - Acne [Recovered/Resolved]
  - Overdose [Recovered/Resolved]
